FAERS Safety Report 10299663 (Version 2)
Quarter: 2014Q4

REPORT INFORMATION
  Report Type: Spontaneous
  Country: JP (occurrence: JP)
  Receive Date: 20140711
  Receipt Date: 20141001
  Transmission Date: 20150528
  Serious: Yes (Other)
  Sender: FDA-Public Use
  Company Number: PHHY2014JP084368

PATIENT
  Sex: Female

DRUGS (3)
  1. NEORAL [Suspect]
     Active Substance: CYCLOSPORINE
     Route: 064
  2. PREDNISOLONE. [Suspect]
     Active Substance: PREDNISOLONE
     Route: 064
  3. BETAMETHASONE [Suspect]
     Active Substance: BETAMETHASONE
     Route: 064

REACTIONS (5)
  - Electrocardiogram PR shortened [Recovered/Resolved]
  - Atrioventricular block first degree [Recovered/Resolved]
  - Foetal exposure during pregnancy [Unknown]
  - Foetal growth restriction [Unknown]
  - Low birth weight baby [Unknown]
